FAERS Safety Report 10433398 (Version 2)
Quarter: 2014Q3

REPORT INFORMATION
  Report Type: Spontaneous
  Country: IN (occurrence: IN)
  Receive Date: 20140905
  Receipt Date: 20140910
  Transmission Date: 20150326
  Serious: Yes (Death, Other)
  Sender: FDA-Public Use
  Company Number: IN-009507513-1409IND001770

PATIENT
  Age: 30 Year
  Sex: Female

DRUGS (2)
  1. REBETOL [Suspect]
     Active Substance: RIBAVIRIN
  2. INTRON A [Suspect]
     Active Substance: INTERFERON ALFA-2B
     Dosage: STRENGHT 30, 1 WEEKLY

REACTIONS (2)
  - Death [Fatal]
  - Skin cancer [Unknown]

NARRATIVE: CASE EVENT DATE: 20120101
